FAERS Safety Report 11984141 (Version 1)
Quarter: 2016Q1

REPORT INFORMATION
  Report Type: Spontaneous
  Country: ES (occurrence: ES)
  Receive Date: 20160201
  Receipt Date: 20160201
  Transmission Date: 20160526
  Serious: Yes (Other)
  Sender: FDA-Public Use
  Company Number: ES-JNJFOC-20160123226

PATIENT

DRUGS (14)
  1. METHOTREXATE [Suspect]
     Active Substance: METHOTREXATE
     Indication: BEHCET^S SYNDROME
     Route: 065
  2. MYCOPHENOLATE [Suspect]
     Active Substance: MYCOPHENOLIC ACID
     Indication: BEHCET^S SYNDROME
     Route: 065
  3. ADALIMUMAB [Suspect]
     Active Substance: ADALIMUMAB
     Indication: UVEITIS
     Route: 058
  4. AZATHIOPRINE. [Suspect]
     Active Substance: AZATHIOPRINE
     Indication: BEHCET^S SYNDROME
     Route: 065
  5. MYCOPHENOLATE [Suspect]
     Active Substance: MYCOPHENOLIC ACID
     Indication: UVEITIS
     Route: 065
  6. INFLIXIMAB, RECOMBINANT [Suspect]
     Active Substance: INFLIXIMAB
     Indication: UVEITIS
     Route: 042
  7. ADALIMUMAB [Suspect]
     Active Substance: ADALIMUMAB
     Indication: BEHCET^S SYNDROME
     Route: 058
  8. METHOTREXATE [Suspect]
     Active Substance: METHOTREXATE
     Indication: UVEITIS
     Route: 065
  9. CYCLOPHOSPHAMIDE. [Suspect]
     Active Substance: CYCLOPHOSPHAMIDE
     Indication: UVEITIS
     Route: 065
  10. TACROLIMUS. [Suspect]
     Active Substance: TACROLIMUS
     Indication: UVEITIS
     Route: 065
  11. INFLIXIMAB, RECOMBINANT [Suspect]
     Active Substance: INFLIXIMAB
     Indication: BEHCET^S SYNDROME
     Route: 042
  12. AZATHIOPRINE. [Suspect]
     Active Substance: AZATHIOPRINE
     Indication: UVEITIS
     Route: 065
  13. TACROLIMUS. [Suspect]
     Active Substance: TACROLIMUS
     Indication: BEHCET^S SYNDROME
     Route: 065
  14. CYCLOPHOSPHAMIDE. [Suspect]
     Active Substance: CYCLOPHOSPHAMIDE
     Indication: BEHCET^S SYNDROME
     Route: 065

REACTIONS (3)
  - Product use issue [Unknown]
  - Off label use [Unknown]
  - Malignant melanoma [Unknown]
